FAERS Safety Report 6982993-1 (Version None)
Quarter: 2010Q3

REPORT INFORMATION
  Report Type: 
  Country: None (occurrence: None)
  Receive Date: 20100914
  Receipt Date: 20100527
  Transmission Date: 20110219
  Serious: Yes (Other)
  Sender: FDA-Public Use
  Company Number: US-PFIZER INC-2010067704

PATIENT
  Sex: Female
  Weight: 63.4 kg

DRUGS (4)
  1. LYRICA [Suspect]
     Indication: CYSTITIS INTERSTITIAL
     Dosage: UNK
     Dates: start: 20070101
  2. MORPHINE [Concomitant]
     Dosage: UNK, DAILY
  3. VALIUM [Concomitant]
     Dosage: UNK, DAILY
  4. TIZANIDINE [Concomitant]
     Dosage: UNK

REACTIONS (3)
  - ANORGASMIA [None]
  - DIZZINESS [None]
  - SUICIDAL IDEATION [None]
